FAERS Safety Report 9087597 (Version 1)
Quarter: 2013Q1

REPORT INFORMATION
  Report Type: Spontaneous
  Country: CH (occurrence: CH)
  Receive Date: 20130131
  Receipt Date: 20130131
  Transmission Date: 20140127
  Serious: Yes (Hospitalization)
  Sender: FDA-Public Use
  Company Number: CH-PFIZER INC-2013040114

PATIENT
  Age: 28 Year
  Sex: Female

DRUGS (1)
  1. SERTRALINE HCL [Suspect]
     Indication: ANXIETY DISORDER
     Dosage: 150 MG, 1X/DAY
     Route: 048
     Dates: start: 2009, end: 201201

REACTIONS (1)
  - Epilepsy [Recovered/Resolved]
